FAERS Safety Report 9844984 (Version 1)
Quarter: 2014Q1

REPORT INFORMATION
  Report Type: Spontaneous
  Country: US (occurrence: None)
  Receive Date: 20140122
  Receipt Date: 20140122
  Transmission Date: 20141002
  Serious: Yes (Death, Hospitalization)
  Sender: FDA-Public Use
  Company Number: B0959129A

PATIENT
  Age: 17 Year
  Sex: Female

DRUGS (2)
  1. BUPROPION HYDROCHLORIDE [Suspect]
     Indication: PRODUCT USED FOR UNKNOWN INDICATION
     Route: 048
  2. ARIPIPRAZOLE [Suspect]
     Indication: PRODUCT USED FOR UNKNOWN INDICATION
     Route: 048

REACTIONS (12)
  - Completed suicide [None]
  - Overdose [None]
  - Refusal of treatment by patient [None]
  - Convulsion [None]
  - Cardiac arrest [None]
  - Mydriasis [None]
  - Unresponsive to stimuli [None]
  - Hypotension [None]
  - Acidosis [None]
  - Brain oedema [None]
  - Brain death [None]
  - Cardio-respiratory arrest [None]
